FAERS Safety Report 9333082 (Version 1)
Quarter: 2013Q2

REPORT INFORMATION
  Report Type: Report from Study
  Country: CA (occurrence: CA)
  Receive Date: 20130606
  Receipt Date: 20130606
  Transmission Date: 20140414
  Serious: Yes (Other)
  Sender: FDA-Public Use
  Company Number: CA-ABBOTT-11P-028-0707092-00

PATIENT
  Sex: Female
  Weight: 72.64 kg

DRUGS (8)
  1. HUMIRA 40 MG/0.8 ML PEN [Suspect]
     Indication: PSORIATIC ARTHROPATHY
     Route: 058
     Dates: start: 20091008, end: 20130522
  2. ZYLOPRIM [Concomitant]
     Indication: PRODUCT USED FOR UNKNOWN INDICATION
     Route: 048
  3. METOPROLOL [Concomitant]
     Indication: HYPERTENSION
     Route: 048
  4. MICARDIS [Concomitant]
     Indication: CARDIAC DISORDER
     Route: 048
  5. PUROL [Concomitant]
     Indication: GOUT
     Route: 048
  6. RABEPRAZOLE-EC [Concomitant]
     Indication: GASTRIC DISORDER
     Route: 048
  7. NICODERM [Concomitant]
     Indication: CARDIAC DISORDER
     Dosage: PATCH, ONE DAILY
     Route: 061
  8. ACETAPHETAMINE [Concomitant]
     Indication: PRODUCT USED FOR UNKNOWN INDICATION
     Route: 048

REACTIONS (7)
  - Parkinson^s disease [Not Recovered/Not Resolved]
  - Feeling abnormal [Unknown]
  - Mobility decreased [Not Recovered/Not Resolved]
  - Balance disorder [Not Recovered/Not Resolved]
  - Fall [Not Recovered/Not Resolved]
  - Contusion [Not Recovered/Not Resolved]
  - Periorbital contusion [Unknown]
